FAERS Safety Report 8032863-5 (Version None)
Quarter: 2012Q1

REPORT INFORMATION
  Report Type: 
  Country: None (occurrence: None)
  Receive Date: 20120110
  Receipt Date: 20111227
  Transmission Date: 20120608
  Serious: Yes (Hospitalization)
  Sender: FDA-Public Use
  Company Number: JP-EISAI INC-E7389-01671-SPO-JP

PATIENT
  Sex: Female
  Weight: 50 kg

DRUGS (5)
  1. HALAVEN [Suspect]
     Indication: BREAST CANCER RECURRENT
     Route: 041
     Dates: start: 20111007
  2. DECADRON [Concomitant]
     Indication: PROPHYLAXIS
     Route: 041
  3. HALAVEN [Suspect]
     Indication: METASTASES TO LUNG
  4. HALAVEN [Suspect]
     Indication: METASTASES TO REPRODUCTIVE ORGAN
  5. LOXONIN [Concomitant]
     Route: 048

REACTIONS (1)
  - PLEURAL EFFUSION [None]
